FAERS Safety Report 6358787-7 (Version None)
Quarter: 2009Q3

REPORT INFORMATION
  Report Type: 
  Country: None (occurrence: None)
  Receive Date: 20090916
  Receipt Date: 20090727
  Transmission Date: 20100115
  Serious: No
  Sender: FDA-Public Use
  Company Number: US-ABBOTT-09P-163-0588129-00

PATIENT
  Sex: Female
  Weight: 65.83 kg

DRUGS (7)
  1. TRILIPIX [Suspect]
     Indication: BLOOD CHOLESTEROL INCREASED
     Dates: start: 20090501, end: 20090501
  2. TRILIPIX [Suspect]
     Dates: start: 20090701
  3. ZOCOR [Concomitant]
     Indication: BLOOD CHOLESTEROL INCREASED
  4. LISINOPRIL [Concomitant]
     Indication: HYPERTENSION
  5. PAXIL [Concomitant]
     Indication: PAIN
  6. ZANTAC [Concomitant]
     Indication: GASTRIC DISORDER
  7. HUMALOG INSULIN PUMP [Concomitant]
     Indication: DIABETES MELLITUS

REACTIONS (2)
  - BLOOD GLUCOSE DECREASED [None]
  - HERPES ZOSTER [None]
